FAERS Safety Report 6518123-X (Version None)
Quarter: 2009Q4

REPORT INFORMATION
  Report Type: 
  Country: None (occurrence: None)
  Receive Date: 20091223
  Receipt Date: 20091223
  Transmission Date: 20100525
  Serious: Yes (Other)
  Sender: FDA-Public Use
  Company Number: None

PATIENT
  Age: 64 Year
  Sex: Female
  Weight: 99.7913 kg

DRUGS (1)
  1. LEVAQUIN [Suspect]
     Indication: PHARYNGITIS STREPTOCOCCAL
     Dosage: 500 MG ONCE A DAY PO
     Route: 048
     Dates: start: 20091221, end: 20091222

REACTIONS (8)
  - ANXIETY [None]
  - GASTROINTESTINAL PAIN [None]
  - HYPERTENSION [None]
  - INSOMNIA [None]
  - MYALGIA [None]
  - PAIN [None]
  - POLLAKIURIA [None]
  - RESTLESSNESS [None]
